FAERS Safety Report 10418973 (Version 2)
Quarter: 2014Q4

REPORT INFORMATION
  Report Type: Report from Study
  Country: PT (occurrence: PT)
  Receive Date: 20140829
  Receipt Date: 20141003
  Transmission Date: 20150528
  Serious: Yes (Other)
  Sender: FDA-Public Use
  Company Number: PHHY2014PT039117

PATIENT

DRUGS (2)
  1. GILENYA [Suspect]
     Active Substance: FINGOLIMOD HYDROCHLORIDE
     Indication: MULTIPLE SCLEROSIS
     Dosage: 0.5 MG, QD
     Route: 048
     Dates: start: 20131115
  2. SOCIAN [Concomitant]
     Active Substance: AMISULPRIDE
     Dates: start: 201408

REACTIONS (1)
  - Weight gain poor [Recovering/Resolving]

NARRATIVE: CASE EVENT DATE: 20131115
